FAERS Safety Report 8379121-7 (Version None)
Quarter: 2012Q1

REPORT INFORMATION
  Report Type: 
  Country: None (occurrence: None)
  Receive Date: 20120323
  Receipt Date: 20110708
  Transmission Date: 20120608
  Serious: Yes (Hospitalization, Other)
  Sender: FDA-Public Use
  Company Number: 163-21880-11032124

PATIENT
  Age: 46 Year
  Sex: Male

DRUGS (3)
  1. VELCADE [Concomitant]
  2. DECADRON [Concomitant]
  3. REVLIMID [Suspect]
     Indication: MULTIPLE MYELOMA
     Dosage: 15 MG, DAILY FOR 14 DAYS OUT OF 21, PO
     Route: 048
     Dates: start: 20110106, end: 20110225

REACTIONS (4)
  - RESPIRATORY FAILURE [None]
  - SEPTIC SHOCK [None]
  - RENAL FAILURE [None]
  - H1N1 INFLUENZA [None]
